FAERS Safety Report 26186492 (Version 1)
Quarter: 2025Q4

REPORT INFORMATION
  Report Type: Spontaneous
  Country: US (occurrence: None)
  Receive Date: 20251222
  Receipt Date: 20251222
  Transmission Date: 20260117
  Serious: No
  Sender: ENDO
  Company Number: US-ENDO USA, INC.-2024-051006

PATIENT
  Sex: Male

DRUGS (8)
  1. XIAFLEX [Suspect]
     Active Substance: COLLAGENASE CLOSTRIDIUM HISTOLYTICUM
     Indication: Peyronie^s disease
     Dosage: 0.58 MILLIGRAM, UNKNOWN (CYCLE 1, INJECTION 1)
     Dates: start: 20240423, end: 20240423
  2. XIAFLEX [Suspect]
     Active Substance: COLLAGENASE CLOSTRIDIUM HISTOLYTICUM
     Dosage: 0.58 MILLIGRAM, UNKNOWN (CYCLE 1, INJECTION 2)
     Dates: start: 20240425, end: 20240425
  3. XIAFLEX [Suspect]
     Active Substance: COLLAGENASE CLOSTRIDIUM HISTOLYTICUM
     Dosage: 0.58 MILLIGRAM, UNKNOWN (CYCLE 2, INJECTION 1)
     Dates: start: 20240709, end: 20240709
  4. XIAFLEX [Suspect]
     Active Substance: COLLAGENASE CLOSTRIDIUM HISTOLYTICUM
     Dosage: 0.58 MILLIGRAM, UNKNOWN (CYCLE 2, INJECTION 2)
     Dates: start: 20240711, end: 20240711
  5. XIAFLEX [Suspect]
     Active Substance: COLLAGENASE CLOSTRIDIUM HISTOLYTICUM
     Dosage: 0.58 MILLIGRAM, UNKNOWN (CYCLE 3, INJECTION 1)
     Dates: start: 20240910, end: 20240910
  6. XIAFLEX [Suspect]
     Active Substance: COLLAGENASE CLOSTRIDIUM HISTOLYTICUM
     Dosage: 0.58 MILLIGRAM, UNKNOWN (CYCLE 3, INJECTION 2)
     Dates: start: 20240912, end: 20240912
  7. XIAFLEX [Suspect]
     Active Substance: COLLAGENASE CLOSTRIDIUM HISTOLYTICUM
     Dosage: 0.58 MILLIGRAM, UNKNOWN (CYCLE 4, INJECTION 1)
     Dates: start: 20241029, end: 20241029
  8. XIAFLEX [Suspect]
     Active Substance: COLLAGENASE CLOSTRIDIUM HISTOLYTICUM
     Dosage: 0.58 MILLIGRAM, UNKNOWN (CYCLE 4, INJECTION 2)
     Dates: start: 20241031, end: 20241031

REACTIONS (4)
  - Peyronie^s disease [Not Recovered/Not Resolved]
  - Drug ineffective [Not Recovered/Not Resolved]
  - Off label use [Not Recovered/Not Resolved]
  - Incorrect product administration duration [Recovered/Resolved]

NARRATIVE: CASE EVENT DATE: 20240101
